FAERS Safety Report 11972899 (Version 3)
Quarter: 2016Q1

REPORT INFORMATION
  Report Type: Spontaneous
  Country: BR (occurrence: BR)
  Receive Date: 20160128
  Receipt Date: 20160329
  Transmission Date: 20160526
  Serious: Yes (Other)
  Sender: FDA-Public Use
  Company Number: BR-PFIZER INC-2015477367

PATIENT
  Age: 48 Year
  Sex: Female

DRUGS (7)
  1. GEODON [Concomitant]
     Active Substance: ZIPRASIDONE HYDROCHLORIDE\ZIPRASIDONE MESYLATE
     Dosage: UNK
     Dates: start: 201512
  2. FRONTAL [Suspect]
     Active Substance: ALPRAZOLAM
     Indication: DEPRESSION
     Dosage: 3 MG, 1X/DAY
     Dates: start: 2014
  3. ZOPIX [Concomitant]
     Dosage: UNK
     Dates: start: 20140724, end: 2015
  4. WELLBUTRIN XL [Concomitant]
     Active Substance: BUPROPION HYDROCHLORIDE
     Dosage: UNK
     Dates: start: 201511
  5. FRONTAL [Suspect]
     Active Substance: ALPRAZOLAM
     Indication: INSOMNIA
     Dosage: 2 MG, 1X/DAY (AT NIGHT)
     Route: 048
     Dates: start: 2010
  6. SYNTHROID [Concomitant]
     Active Substance: LEVOTHYROXINE SODIUM
     Indication: THYROID DISORDER
     Dosage: UNK
     Dates: start: 2013
  7. PRISTIQ EXTENDED RELEASE [Concomitant]
     Active Substance: DESVENLAFAXINE SUCCINATE
     Indication: DEPRESSION
     Dosage: UNK
     Dates: start: 201512

REACTIONS (12)
  - Social avoidant behaviour [Unknown]
  - Condition aggravated [Not Recovered/Not Resolved]
  - Panic disorder [Not Recovered/Not Resolved]
  - Depression [Unknown]
  - Poor quality drug administered [Unknown]
  - Memory impairment [Not Recovered/Not Resolved]
  - Visual impairment [Not Recovered/Not Resolved]
  - Self esteem decreased [Unknown]
  - Fear [Unknown]
  - Condition aggravated [Unknown]
  - Product use issue [Unknown]
  - Product physical issue [Unknown]

NARRATIVE: CASE EVENT DATE: 2010
